FAERS Safety Report 17094365 (Version 4)
Quarter: 2022Q3

REPORT INFORMATION
  Report Type: Report from Study
  Country: MY (occurrence: MY)
  Receive Date: 20191129
  Receipt Date: 20220906
  Transmission Date: 20221026
  Serious: Yes (Hospitalization)
  Sender: FDA-Public Use
  Company Number: NVSC2019MY031864

PATIENT
  Age: 61 Year
  Sex: Male
  Weight: 48.4 kg

DRUGS (13)
  1. PEMBROLIZUMAB [Suspect]
     Active Substance: PEMBROLIZUMAB
     Indication: Non-small cell lung cancer
     Dosage: 200 MG
     Route: 042
     Dates: start: 20191031
  2. PEMETREXED DISODIUM [Suspect]
     Active Substance: PEMETREXED DISODIUM
     Indication: Non-small cell lung cancer
     Dosage: 725 MG
     Route: 042
     Dates: start: 20191031
  3. CARBOPLATIN [Suspect]
     Active Substance: CARBOPLATIN
     Indication: Non-small cell lung cancer
     Dosage: 426 MG
     Route: 042
     Dates: start: 20191031
  4. POTASSIUM CHLORIDE [Concomitant]
     Active Substance: POTASSIUM CHLORIDE
     Indication: Premedication
     Dosage: UNK
     Route: 065
     Dates: start: 20191031
  5. MANNITOL [Concomitant]
     Active Substance: MANNITOL
     Indication: Premedication
     Dosage: UNK
     Route: 065
     Dates: start: 20191031
  6. GRANISETRON [Concomitant]
     Active Substance: GRANISETRON
     Indication: Premedication
     Dosage: UNK
     Route: 065
     Dates: start: 20191031
  7. DEXAMETHASONE [Concomitant]
     Active Substance: DEXAMETHASONE
     Indication: Premedication
     Dosage: UNK
     Route: 065
     Dates: start: 20191031, end: 20191031
  8. SODIUM CHLORIDE [Concomitant]
     Active Substance: SODIUM CHLORIDE
     Indication: Premedication
     Dosage: UNK
     Route: 065
     Dates: start: 20191031
  9. CYANOCOBALAMIN [Concomitant]
     Active Substance: CYANOCOBALAMIN
     Indication: Premedication
     Dosage: UNK
     Route: 065
     Dates: start: 20191016, end: 20191016
  10. FOLIC ACID [Concomitant]
     Active Substance: FOLIC ACID
     Indication: Premedication
     Dosage: UNK
     Route: 065
     Dates: start: 20191016, end: 20191016
  11. METOCLOPRAMIDE [Concomitant]
     Active Substance: METOCLOPRAMIDE
     Indication: Premedication
     Dosage: UNK
     Route: 065
     Dates: start: 20190212
  12. FERROUS SULFATE [Concomitant]
     Active Substance: FERROUS SULFATE
     Indication: Supplementation therapy
     Dosage: UNK
     Route: 065
     Dates: start: 20191031
  13. FERROUS SULFATE [Concomitant]
     Active Substance: FERROUS SULFATE
     Indication: Anaemia

REACTIONS (1)
  - Pneumonia [Recovered/Resolved]

NARRATIVE: CASE EVENT DATE: 20191102
